FAERS Safety Report 17770550 (Version 2)
Quarter: 2021Q3

REPORT INFORMATION
  Report Type: Spontaneous
  Country: FR (occurrence: FR)
  Receive Date: 20200512
  Receipt Date: 20210920
  Transmission Date: 20211014
  Serious: Yes (Hospitalization)
  Sender: FDA-Public Use
  Company Number: FR-009507513-2005FRA002105

PATIENT
  Age: 52 Year
  Sex: Female
  Weight: 106 kg

DRUGS (6)
  1. FUROSEMIDE. [Suspect]
     Active Substance: FUROSEMIDE
     Indication: CONGESTIVE CARDIOMYOPATHY
     Dosage: 20 MILLIGRAM, QD
     Route: 048
  2. BISOPROLOL FUMARATE. [Suspect]
     Active Substance: BISOPROLOL FUMARATE
     Indication: CONGESTIVE CARDIOMYOPATHY
     Dosage: 10 MILLIGRAM, QD
     Route: 048
  3. IVERMECTIN. [Suspect]
     Active Substance: IVERMECTIN
     Indication: INFECTION PARASITIC
     Dosage: 18 MILLIGRAM, QD
     Route: 048
     Dates: start: 20200314, end: 20200314
  4. XARELTO [Suspect]
     Active Substance: RIVAROXABAN
     Indication: CONGESTIVE CARDIOMYOPATHY
     Dosage: 1 DOSAGE FORM, QD
     Route: 048
     Dates: start: 20200202
  5. EPLERENONE. [Suspect]
     Active Substance: EPLERENONE
     Indication: CONGESTIVE CARDIOMYOPATHY
     Dosage: 50 MILLIGRAM, QD
     Route: 048
  6. TRIATEC [RAMIPRIL] [Suspect]
     Active Substance: RAMIPRIL
     Indication: CONGESTIVE CARDIOMYOPATHY
     Dosage: 1 DOSAGE FORM, QD, BREAKABLE TABLET
     Route: 048

REACTIONS (2)
  - Cutaneous vasculitis [Not Recovered/Not Resolved]
  - Vascular purpura [Not Recovered/Not Resolved]

NARRATIVE: CASE EVENT DATE: 20200320
